FAERS Safety Report 7360805-4 (Version None)
Quarter: 2011Q1

REPORT INFORMATION
  Report Type: 
  Country: None (occurrence: None)
  Receive Date: 20110318
  Receipt Date: 20110308
  Transmission Date: 20110831
  Serious: Yes (Death, Life-Threatening, Hospitalization, Other)
  Sender: FDA-Public Use
  Company Number: JP-CELGENEUS-087-21880-10122475

PATIENT
  Sex: Female
  Weight: 39 kg

DRUGS (3)
  1. REVLIMID [Suspect]
     Indication: MULTIPLE MYELOMA
     Dosage: 15 MILLIGRAM
     Route: 048
     Dates: start: 20101208, end: 20101211
  2. LENADEX [Suspect]
     Indication: MULTIPLE MYELOMA
     Dosage: 40 MILLIGRAM
     Route: 048
     Dates: start: 20101208, end: 20101208
  3. ASPIRIN [Concomitant]
     Indication: PROPHYLAXIS
     Dosage: 100 MILLIGRAM
     Route: 048
     Dates: start: 20101208, end: 20101227

REACTIONS (9)
  - INTERSTITIAL LUNG DISEASE [None]
  - SEPSIS [None]
  - RENAL IMPAIRMENT [None]
  - MYOCARDIAL INFARCTION [None]
  - CONSTIPATION [None]
  - ILEUS [None]
  - NEUROPATHY PERIPHERAL [None]
  - PYREXIA [None]
  - ANAEMIA [None]
